FAERS Safety Report 9598931 (Version 1)
Quarter: 2013Q4

REPORT INFORMATION
  Report Type: Spontaneous
  Country: US (occurrence: US)
  Receive Date: 20131004
  Receipt Date: 20131004
  Transmission Date: 20140711
  Serious: No
  Sender: FDA-Public Use
  Company Number: US-AMGEN-USASP2013027211

PATIENT
  Age: 58 Year
  Sex: Female
  Weight: 77.1 kg

DRUGS (14)
  1. ENBREL [Suspect]
     Indication: PRODUCT USED FOR UNKNOWN INDICATION
     Dosage: 50 MG, QWK
  2. PANTOPRAZOLE [Concomitant]
     Dosage: 40 MG, UNK
  3. AMBIEN [Concomitant]
     Dosage: 5 MG, UNK
  4. METHOTREXATE [Concomitant]
     Dosage: 2.5 MG, UNK
  5. LYRICA [Concomitant]
     Dosage: 100 MG, UNK
  6. TRAMADOL HCL [Concomitant]
     Dosage: 50 MG, UNK
  7. LISINOPRIL [Concomitant]
     Dosage: 5 MG, UNK
  8. BENZONATATE [Concomitant]
     Dosage: 100 MG, UNK
  9. CYCLOBENZAPRINE [Concomitant]
     Dosage: 30 MG, UNK
  10. ATORVASTATIN [Concomitant]
     Dosage: 10 MG, UNK
  11. MONTELUKAST [Concomitant]
     Dosage: 10 MG, UNK
  12. ZETIA [Concomitant]
     Dosage: 10 MG, UNK
  13. ASPIRIN [Concomitant]
     Dosage: 81 MG, UNK
  14. TYLENOL 8 HOUR [Concomitant]
     Dosage: 650 MG, UNK

REACTIONS (1)
  - Weight decreased [Unknown]
